FAERS Safety Report 4790318-5 (Version None)
Quarter: 2005Q4

REPORT INFORMATION
  Report Type: 
  Country: None (occurrence: None)
  Receive Date: 20051005
  Receipt Date: 20051003
  Transmission Date: 20060501
  Serious: Yes (Death, Hospitalization)
  Sender: FDA-Public Use
  Company Number: 216579

PATIENT
  Age: 65 Year
  Sex: Male
  Weight: 68 kg

DRUGS (5)
  1. AVASTIN [Suspect]
     Indication: PANCREATIC CARCINOMA METASTATIC
     Dosage: 10 MG/KG, INTRAVENOUS
     Route: 042
     Dates: start: 20050321, end: 20050624
  2. TAXOTERE [Suspect]
     Indication: PANCREATIC CARCINOMA METASTATIC
     Dosage: 35 MG/M2, INTRAVENOUS
     Route: 042
     Dates: start: 20050321, end: 20050624
  3. ATENOLOL [Concomitant]
  4. OXYCONTIN [Concomitant]
  5. HYDROCODONE BITARTRATE [Concomitant]

REACTIONS (28)
  - ACIDOSIS [None]
  - ANAEMIA [None]
  - ATELECTASIS [None]
  - BACTERIA URINE IDENTIFIED [None]
  - BLOOD CULTURE POSITIVE [None]
  - CANDIDIASIS [None]
  - CARDIAC FAILURE [None]
  - CEREBRAL ATROPHY [None]
  - CHEYNE-STOKES RESPIRATION [None]
  - COLITIS [None]
  - COMA [None]
  - DELIRIUM [None]
  - HYPOCALCAEMIA [None]
  - HYPOPERFUSION [None]
  - HYPOTENSION [None]
  - HYPOVOLAEMIA [None]
  - HYPOXIC ENCEPHALOPATHY [None]
  - ILEUS [None]
  - INJURY [None]
  - INTESTINAL PERFORATION [None]
  - LYMPHATIC OBSTRUCTION [None]
  - PLATELET COUNT INCREASED [None]
  - PLEURAL EFFUSION [None]
  - PNEUMONIA [None]
  - RENAL FAILURE ACUTE [None]
  - RESPIRATORY FAILURE [None]
  - SEPTIC SHOCK [None]
  - WHITE BLOOD CELLS URINE [None]
